FAERS Safety Report 7496439-0 (Version None)
Quarter: 2011Q2

REPORT INFORMATION
  Report Type: 
  Country: None (occurrence: None)
  Receive Date: 20110523
  Receipt Date: 20110518
  Transmission Date: 20111010
  Serious: Yes (Hospitalization, Other)
  Sender: FDA-Public Use
  Company Number: NO-PFIZER INC-2011106358

PATIENT
  Age: 63 Year
  Sex: Female

DRUGS (1)
  1. NEURONTIN [Suspect]
     Indication: NERVE INJURY
     Dosage: 600 MG, UNK
     Route: 048
     Dates: start: 20100601

REACTIONS (6)
  - HEADACHE [None]
  - MOOD SWINGS [None]
  - TRISMUS [None]
  - SWELLING FACE [None]
  - BRONCHITIS [None]
  - OROPHARYNGEAL PAIN [None]
